FAERS Safety Report 19609772 (Version 3)
Quarter: 2021Q3

REPORT INFORMATION
  Report Type: Report from Study
  Country: US (occurrence: US)
  Receive Date: 20210726
  Receipt Date: 20210927
  Transmission Date: 20211014
  Serious: Yes (Hospitalization)
  Sender: FDA-Public Use
  Company Number: US-KYOWAKIRIN-2021BKK012700

PATIENT

DRUGS (2)
  1. CRYSVITA [Suspect]
     Active Substance: BUROSUMAB-TWZA
     Indication: HEREDITARY HYPOPHOSPHATAEMIC RICKETS
     Dosage: 40 MG, ONCE EVERY 2 WEEKS
     Route: 058
     Dates: start: 20190924
  2. CRYSVITA [Suspect]
     Active Substance: BUROSUMAB-TWZA
     Dosage: 40 MG, EVERY 14 DAYS
     Route: 058

REACTIONS (2)
  - Adverse event [Unknown]
  - Limb operation [Recovering/Resolving]

NARRATIVE: CASE EVENT DATE: 2021
